FAERS Safety Report 18413798 (Version 1)
Quarter: 2020Q4

REPORT INFORMATION
  Report Type: Spontaneous
  Country: US (occurrence: US)
  Receive Date: 20201022
  Receipt Date: 20201022
  Transmission Date: 20210114
  Serious: Yes (Other)
  Sender: FDA-Public Use
  Company Number: US-SA-2020SA292157

PATIENT

DRUGS (1)
  1. DUPIXENT [Suspect]
     Active Substance: DUPILUMAB
     Indication: DERMATITIS ATOPIC
     Dosage: 300 MG, QOW
     Route: 058
     Dates: start: 20200930, end: 20201007

REACTIONS (7)
  - Oral discharge [Unknown]
  - Purulent discharge [Unknown]
  - Rhinitis [Unknown]
  - Eye discharge [Unknown]
  - Stevens-Johnson syndrome [Unknown]
  - Product use issue [Unknown]
  - Skin fissures [Unknown]

NARRATIVE: CASE EVENT DATE: 2020
